FAERS Safety Report 8494768-5 (Version None)
Quarter: 2012Q3

REPORT INFORMATION
  Report Type: 
  Country: None (occurrence: None)
  Receive Date: 20120709
  Receipt Date: 20120702
  Transmission Date: 20120928
  Serious: No
  Sender: FDA-Public Use
  Company Number: US-BAYER-2012-067545

PATIENT
  Age: 17 Year
  Sex: Female
  Weight: 61 kg

DRUGS (2)
  1. GENERIC BACTRIM [Concomitant]
  2. NAPROXEN (ALEVE) [Suspect]
     Indication: ANALGESIC THERAPY
     Dosage: TAB
     Route: 048
     Dates: start: 20120630

REACTIONS (1)
  - VOMITING [None]
